FAERS Safety Report 23073968 (Version 1)
Quarter: 2023Q4

REPORT INFORMATION
  Report Type: Report from Study
  Country: MX (occurrence: MX)
  Receive Date: 20231017
  Receipt Date: 20231017
  Transmission Date: 20240109
  Serious: Yes (Hospitalization)
  Sender: FDA-Public Use
  Company Number: MX-002147023-NVSC2022MX225442

PATIENT
  Age: 26 Year
  Sex: Male
  Weight: 80 kg

DRUGS (3)
  1. OFATUMUMAB [Suspect]
     Active Substance: OFATUMUMAB
     Indication: Multiple sclerosis
     Dosage: 1 DOSAGE FORM, (20MG  GLW  0.4ML) (DURING 21 DAYS ONCE A WEEK AND AFTERWARDS MONTHLY)
     Route: 058
     Dates: start: 2021
  2. OFATUMUMAB [Suspect]
     Active Substance: OFATUMUMAB
     Dosage: 20 MG (FREQUENCY: DURING 21 CALENDAR DAYS WEEKLY THEN WILL HAVE TO INJECT A LITTLE SYRINGE MONTHLY D
     Route: 058
  3. OFATUMUMAB [Suspect]
     Active Substance: OFATUMUMAB
     Dosage: 20 MG, QMO (1 OF 20 MG)
     Route: 058
     Dates: start: 20220930

REACTIONS (24)
  - Campylobacter bacteraemia [Recovered/Resolved]
  - Pyrexia [Recovered/Resolved]
  - Headache [Recovered/Resolved]
  - Diarrhoea [Recovered/Resolved]
  - Headache [Recovering/Resolving]
  - Feeling cold [Recovering/Resolving]
  - Tremor [Unknown]
  - Somnolence [Unknown]
  - Nasal congestion [Recovering/Resolving]
  - Oropharyngeal pain [Recovering/Resolving]
  - Alopecia [Not Recovered/Not Resolved]
  - Injection site swelling [Unknown]
  - Injection site inflammation [Not Recovered/Not Resolved]
  - Injection site pain [Recovering/Resolving]
  - Influenza [Recovering/Resolving]
  - Cough [Recovering/Resolving]
  - Rhinorrhoea [Recovering/Resolving]
  - Fatigue [Unknown]
  - Weight increased [Not Recovered/Not Resolved]
  - Hyperthermia [Not Recovered/Not Resolved]
  - Dysaesthesia [Not Recovered/Not Resolved]
  - Food poisoning [Recovered/Resolved]
  - Off label use [Not Recovered/Not Resolved]
  - Therapeutic product effect incomplete [Unknown]

NARRATIVE: CASE EVENT DATE: 20220930
